FAERS Safety Report 14601100 (Version 1)
Quarter: 2018Q1

REPORT INFORMATION
  Report Type: Spontaneous
  Country: US (occurrence: US)
  Receive Date: 20180305
  Receipt Date: 20180305
  Transmission Date: 20180509
  Serious: No
  Sender: FDA-Public Use
  Company Number: US-ACTELION-A-NJ2018-168345

PATIENT
  Age: 3 Month
  Sex: Male

DRUGS (1)
  1. TRACLEER [Suspect]
     Active Substance: BOSENTAN
     Indication: PULMONARY HYPERTENSION
     Dosage: 15.625 MG, BID
     Route: 048

REACTIONS (2)
  - No adverse event [Unknown]
  - Drug administered to patient of inappropriate age [Unknown]
